FAERS Safety Report 24607265 (Version 2)
Quarter: 2025Q3

REPORT INFORMATION
  Report Type: Spontaneous
  Country: US (occurrence: US)
  Receive Date: 20241112
  Receipt Date: 20250711
  Transmission Date: 20251020
  Serious: Yes (Hospitalization, Other)
  Sender: COOPERSURGICAL
  Company Number: US-COOPERSURGICAL, INC.-2024CPS003339

PATIENT
  Age: 35 Year
  Sex: Female
  Weight: 72.562 kg

DRUGS (12)
  1. PARAGARD T 380A [Suspect]
     Active Substance: COPPER
     Indication: Contraception
     Route: 015
     Dates: start: 20110520, end: 20200824
  2. COLCHICINE [Concomitant]
     Active Substance: COLCHICINE
     Dates: start: 201212, end: 201403
  3. FLUTICASONE [Concomitant]
     Active Substance: FLUTICASONE
     Dates: start: 201307, end: 2020
  4. IBUPROFEN [Concomitant]
     Active Substance: IBUPROFEN
     Dates: start: 201310, end: 201501
  5. MUPIROCIN [Concomitant]
     Active Substance: MUPIROCIN
     Route: 061
     Dates: start: 201312, end: 201504
  6. CYCLOBENZAPRINE [Concomitant]
     Active Substance: CYCLOBENZAPRINE
     Dates: start: 201802
  7. ATENOLOL [Concomitant]
     Active Substance: ATENOLOL
     Dates: start: 201805
  8. LOSARTAN [Concomitant]
     Active Substance: LOSARTAN
     Dates: start: 202002
  9. TENORMIN [Concomitant]
     Active Substance: ATENOLOL
     Dates: start: 202002
  10. METOPROLOL SUCCINATE [Concomitant]
     Active Substance: METOPROLOL SUCCINATE
  11. ACYCLOVIR [Concomitant]
     Active Substance: ACYCLOVIR
     Dates: start: 200804
  12. HYDROCHLOROTHIAZIDE [Concomitant]
     Active Substance: HYDROCHLOROTHIAZIDE
     Dates: start: 201102

REACTIONS (32)
  - Reproductive complication associated with device [Not Recovered/Not Resolved]
  - Hysterectomy [Recovered/Resolved]
  - Salpingectomy [Recovered/Resolved]
  - Uterine leiomyoma [Unknown]
  - Ovarian cyst [Recovered/Resolved]
  - Postoperative wound infection [Unknown]
  - Pelvic abscess [Unknown]
  - Device breakage [Recovered/Resolved]
  - Foreign body in reproductive tract [Recovered/Resolved]
  - Complication of device removal [Recovered/Resolved]
  - Embedded device [Recovered/Resolved]
  - Depression [Unknown]
  - Migraine [Unknown]
  - Upper respiratory tract infection [Unknown]
  - Ear infection [Unknown]
  - Rhinitis [Unknown]
  - Road traffic accident [Recovered/Resolved]
  - Post-traumatic neck syndrome [Unknown]
  - Limb injury [Unknown]
  - Back injury [Unknown]
  - Gastroenteritis [Unknown]
  - Chest pain [Unknown]
  - Abdominal pain upper [Unknown]
  - Accident at work [Unknown]
  - Paraesthesia [Unknown]
  - Gout [Not Recovered/Not Resolved]
  - Hypersensitivity [Unknown]
  - Muscle strain [Unknown]
  - Folliculitis [Recovered/Resolved]
  - Abdominal pain lower [Unknown]
  - Abnormal uterine bleeding [Unknown]
  - Pain [Not Recovered/Not Resolved]

NARRATIVE: CASE EVENT DATE: 20121201
